FAERS Safety Report 7765979-9 (Version None)
Quarter: 2011Q3

REPORT INFORMATION
  Report Type: 
  Country: None (occurrence: None)
  Receive Date: 20110921
  Receipt Date: 20110909
  Transmission Date: 20111222
  Serious: Yes (Hospitalization, Other)
  Sender: FDA-Public Use
  Company Number: US-BAYER-2011-052578

PATIENT
  Age: 21 Year
  Sex: Female
  Weight: 47.619 kg

DRUGS (10)
  1. YAZ [Suspect]
     Indication: PRODUCT USED FOR UNKNOWN INDICATION
     Dosage: UNK
     Dates: start: 20060501
  2. ANTIEMETICS AND ANTINAUSEANTS [Concomitant]
  3. VICODIN [Concomitant]
     Route: 048
  4. BEYAZ [Suspect]
     Dosage: UNK
     Dates: start: 20110401
  5. YAZ [Suspect]
     Dosage: UNK
     Dates: start: 20070701, end: 20081101
  6. YASMIN [Suspect]
     Dosage: UNK
     Dates: start: 20060901, end: 20061001
  7. YASMIN [Suspect]
     Indication: ACNE
     Dosage: UNK
     Dates: start: 20021101, end: 20050701
  8. LEVSIN [Concomitant]
     Route: 048
  9. YAZ [Suspect]
     Dosage: UNK
     Dates: end: 20090401
  10. PROTONIX [Concomitant]

REACTIONS (6)
  - CHEST PAIN [None]
  - EMOTIONAL DISTRESS [None]
  - CHOLECYSTECTOMY [None]
  - CHOLECYSTITIS ACUTE [None]
  - MASS [None]
  - ABDOMINAL PAIN [None]
